FAERS Safety Report 7462528-X (Version None)
Quarter: 2011Q2

REPORT INFORMATION
  Report Type: 
  Country: None (occurrence: None)
  Receive Date: 20110506
  Receipt Date: 20101115
  Transmission Date: 20111010
  Serious: No
  Sender: FDA-Public Use
  Company Number: US-BAYER-2010-002844

PATIENT
  Age: 64 Year
  Sex: Female

DRUGS (4)
  1. PENICILLIN [Concomitant]
  2. AVELOX [Suspect]
     Dosage: 400 MG, QD
     Route: 048
     Dates: start: 20100927, end: 20101002
  3. DOXYCYCLINE [Concomitant]
  4. SULFA [Concomitant]

REACTIONS (4)
  - MALAISE [None]
  - HYPOAESTHESIA [None]
  - ASTHENIA [None]
  - JOINT CREPITATION [None]
